FAERS Safety Report 24925147 (Version 1)
Quarter: 2025Q1

REPORT INFORMATION
  Report Type: Report from Study
  Country: US (occurrence: US)
  Receive Date: 20250204
  Receipt Date: 20250204
  Transmission Date: 20250408
  Serious: No
  Sender: EXELIXIS
  Company Number: US-EXELIXIS-CABO-24077949

PATIENT
  Sex: Male

DRUGS (15)
  1. CABOMETYX [Suspect]
     Active Substance: CABOZANTINIB S-MALATE
     Indication: Renal cell carcinoma
  2. POTASSIUM [Concomitant]
     Active Substance: POTASSIUM
  3. SERTRALINE [Concomitant]
     Active Substance: SERTRALINE HYDROCHLORIDE
  4. LEVOTHYROXINE SODIUM [Concomitant]
     Active Substance: LEVOTHYROXINE SODIUM
  5. ELIQUIS [Concomitant]
     Active Substance: APIXABAN
  6. GLIMEPIRIDE [Concomitant]
     Active Substance: GLIMEPIRIDE
  7. BUMETANIDE [Concomitant]
     Active Substance: BUMETANIDE
  8. VITAMIN D [Concomitant]
     Active Substance: VITAMIN D NOS
  9. AMIODARONE [Concomitant]
     Active Substance: AMIODARONE
  10. ATORVASTATIN [Concomitant]
     Active Substance: ATORVASTATIN
  11. VESICARE [Concomitant]
     Active Substance: SOLIFENACIN SUCCINATE
  12. ALLOPURINOL [Concomitant]
     Active Substance: ALLOPURINOL
  13. NOVOLOG [Concomitant]
     Active Substance: INSULIN ASPART
  14. VICTOZA [Concomitant]
     Active Substance: LIRAGLUTIDE
  15. LEVEMIR [Concomitant]
     Active Substance: INSULIN DETEMIR

REACTIONS (3)
  - Skin ulcer [Unknown]
  - Rash [Unknown]
  - Stress [Unknown]
